FAERS Safety Report 4298463-8 (Version None)
Quarter: 2004Q1

REPORT INFORMATION
  Report Type: 
  Country: None (occurrence: None)
  Receive Date: 20040126
  Receipt Date: 20031023
  Transmission Date: 20041129
  Serious: No
  Sender: FDA-Public Use
  Company Number: USA031050695

PATIENT
  Age: 9 Year
  Sex: Male
  Weight: 47 kg

DRUGS (1)
  1. STRATTERA [Suspect]
     Dosage: 60 MG/DAY
     Dates: start: 20030701

REACTIONS (1)
  - HYPOGLYCAEMIA [None]
